FAERS Safety Report 23350791 (Version 3)
Quarter: 2024Q1

REPORT INFORMATION
  Report Type: Spontaneous
  Country: US (occurrence: US)
  Receive Date: 20231229
  Receipt Date: 20240306
  Transmission Date: 20240410
  Serious: Yes (Hospitalization, Other)
  Sender: FDA-Public Use
  Company Number: US-PFIZER INC-PV202300204945

PATIENT
  Age: 73 Year
  Sex: Male
  Weight: 102.04 kg

DRUGS (1)
  1. VYNDAMAX [Suspect]
     Active Substance: TAFAMIDIS
     Indication: Acquired ATTR amyloidosis
     Dosage: 61 MG ONCE A DAY
     Dates: start: 202302

REACTIONS (2)
  - Pneumonia [Unknown]
  - Bronchitis [Unknown]
